FAERS Safety Report 14084687 (Version 4)
Quarter: 2018Q1

REPORT INFORMATION
  Report Type: Report from Study
  Country: None (occurrence: AR)
  Receive Date: 20171013
  Receipt Date: 20180202
  Transmission Date: 20180508
  Serious: Yes (Hospitalization, Other)
  Sender: FDA-Public Use
  Company Number: AR-ABBVIE-17K-007-2130071-00

PATIENT
  Sex: Female

DRUGS (3)
  1. PARKINAL [Concomitant]
     Indication: PARKINSON^S DISEASE
  2. HUMIRA [Suspect]
     Active Substance: ADALIMUMAB
     Indication: RHEUMATOID ARTHRITIS
     Route: 058
     Dates: start: 20080101, end: 20170829
  3. HUMIRA [Suspect]
     Active Substance: ADALIMUMAB
     Route: 058
     Dates: start: 20171011

REACTIONS (2)
  - Parkinson^s disease [Not Recovered/Not Resolved]
  - Breast calcifications [Recovered/Resolved]

NARRATIVE: CASE EVENT DATE: 2015
